FAERS Safety Report 5152857-7 (Version None)
Quarter: 2006Q4

REPORT INFORMATION
  Report Type: 
  Country: None (occurrence: None)
  Receive Date: 20060918
  Receipt Date: 20051020
  Transmission Date: 20070319
  Serious: Yes (Other)
  Sender: FDA-Public Use
  Company Number: PHEH2005US11804

PATIENT
  Age: 62 Year
  Sex: Female

DRUGS (2)
  1. FEMARA [Suspect]
     Indication: BREAST CANCER
     Dosage: 2.5 MG, QD, ORAL
     Route: 048
     Dates: end: 20050601
  2. FOSAMAX [Concomitant]

REACTIONS (3)
  - ANKLE FRACTURE [None]
  - ARTHRALGIA [None]
  - JOINT STABILISATION [None]
